FAERS Safety Report 6966901-5 (Version None)
Quarter: 2010Q3

REPORT INFORMATION
  Report Type: 
  Country: None (occurrence: None)
  Receive Date: 20100906
  Receipt Date: 20100901
  Transmission Date: 20110219
  Serious: Yes (Death, Other)
  Sender: FDA-Public Use
  Company Number: PHHY2010JP49420

PATIENT
  Age: 52 Year
  Sex: Female

DRUGS (4)
  1. VOLTAREN [Suspect]
     Indication: CANCER PAIN
     Dosage: 25 MG, TWICE DAILY
     Route: 054
  2. MEROPENEM [Concomitant]
  3. DOPAMINE HYDROCHLORIDE [Concomitant]
  4. DUROTEP JANSSEN [Concomitant]

REACTIONS (8)
  - BLOOD PRESSURE DECREASED [None]
  - CONVULSION [None]
  - DEPRESSED LEVEL OF CONSCIOUSNESS [None]
  - GASTROINTESTINAL DISORDER [None]
  - GENERAL PHYSICAL HEALTH DETERIORATION [None]
  - PANCREATIC CARCINOMA [None]
  - PYREXIA [None]
  - SEPSIS [None]
